FAERS Safety Report 9560377 (Version 1)
Quarter: 2013Q3

REPORT INFORMATION
  Report Type: Spontaneous
  Country: ES (occurrence: ES)
  Receive Date: 20130927
  Receipt Date: 20130927
  Transmission Date: 20140515
  Serious: Yes (Other)
  Sender: FDA-Public Use
  Company Number: ES-JNJFOC-20130915531

PATIENT
  Age: 76 Year
  Sex: Female

DRUGS (1)
  1. PAZITAL [Suspect]
     Indication: PAIN
     Route: 048
     Dates: start: 20130610, end: 20130901

REACTIONS (5)
  - Agitation [Recovered/Resolved]
  - Dysarthria [Recovered/Resolved]
  - Confusional state [Recovered/Resolved]
  - Hallucination, visual [Recovered/Resolved]
  - Disorientation [Recovered/Resolved]
